FAERS Safety Report 6980380-3 (Version None)
Quarter: 2010Q3

REPORT INFORMATION
  Report Type: 
  Country: None (occurrence: None)
  Receive Date: 20100914
  Receipt Date: 20091216
  Transmission Date: 20110219
  Serious: No
  Sender: FDA-Public Use
  Company Number: US-ABBOTT-09P-163-0615816-00

PATIENT
  Sex: Female
  Weight: 20.9 kg

DRUGS (6)
  1. DEPAKOTE [Suspect]
     Indication: MYOCLONIC EPILEPSY
     Dosage: 250MG IN AM, 375MG AT HS
     Route: 048
     Dates: start: 20090601, end: 20090701
  2. DEPAKOTE [Suspect]
     Dosage: 125 X2 IN AM AND QHS
     Route: 048
     Dates: start: 20090701, end: 20090801
  3. DEPAKOTE [Suspect]
     Dosage: 250 MG AM, 375 MG QHS
     Route: 048
     Dates: start: 20090801, end: 20091001
  4. DEPAKOTE [Suspect]
     Route: 048
     Dates: start: 20091001
  5. DEPAKOTE [Suspect]
     Dosage: 125MG AM, 250MG QHS
     Route: 048
     Dates: start: 20091001, end: 20091001
  6. ETHUXIMIDE [Concomitant]
     Indication: CONVULSION
     Route: 048

REACTIONS (3)
  - ENURESIS [None]
  - MICTURITION URGENCY [None]
  - POLLAKIURIA [None]
